FAERS Safety Report 22615565 (Version 1)
Quarter: 2023Q2

REPORT INFORMATION
  Report Type: Spontaneous
  Country: AU (occurrence: AU)
  Receive Date: 20230619
  Receipt Date: 20230619
  Transmission Date: 20230722
  Serious: Yes (Hospitalization, Other)
  Sender: FDA-Public Use
  Company Number: AU-JUBILANT CADISTA PHARMACEUTICALS-2023AU000589

PATIENT
  Age: 13 Year

DRUGS (1)
  1. CLONIDINE [Suspect]
     Active Substance: CLONIDINE
     Indication: Product used for unknown indication
     Dosage: 22 ?G/KG,  UNK

REACTIONS (4)
  - Toxicity to various agents [Unknown]
  - Depressed level of consciousness [Unknown]
  - Bradycardia [Unknown]
  - Hypotension [Unknown]
